FAERS Safety Report 18818207 (Version 4)
Quarter: 2021Q3

REPORT INFORMATION
  Report Type: Spontaneous
  Country: JP (occurrence: JP)
  Receive Date: 20210201
  Receipt Date: 20210718
  Transmission Date: 20211014
  Serious: Yes (Death, Other)
  Sender: FDA-Public Use
  Company Number: NVSJ2021JP001686

PATIENT
  Age: 88 Year
  Sex: Male

DRUGS (6)
  1. ENTRESTO [Suspect]
     Active Substance: SACUBITRIL\VALSARTAN
     Indication: CARDIAC FAILURE CHRONIC
     Dosage: 200 MG, BID
     Route: 048
     Dates: start: 20201128, end: 20210126
  2. JANUVIA [Concomitant]
     Active Substance: SITAGLIPTIN PHOSPHATE
     Indication: TYPE 2 DIABETES MELLITUS
     Dosage: 50 MG, QD
     Route: 048
     Dates: start: 20200520, end: 20210126
  3. LASIX [Concomitant]
     Active Substance: FUROSEMIDE
     Indication: CARDIAC FAILURE CHRONIC
     Dosage: 40 MG, QD
     Route: 048
     Dates: start: 20201231, end: 20210126
  4. BISONO [Concomitant]
     Active Substance: BISOPROLOL
     Indication: CARDIAC FAILURE CHRONIC
     Dosage: 4 UNK, QD
     Route: 065
     Dates: start: 20200520, end: 20210126
  5. PREDONINE [Concomitant]
     Active Substance: PREDNISOLONE
     Indication: THROMBOCYTOPENIA
     Dosage: 10 MG, QD
     Route: 065
     Dates: start: 20200520, end: 20210126
  6. FORXIGA [Concomitant]
     Active Substance: DAPAGLIFLOZIN
     Indication: CARDIAC FAILURE CHRONIC
     Dosage: 10 MG, QD
     Route: 048
     Dates: start: 20201228, end: 20210126

REACTIONS (6)
  - Pneumonia aspiration [Fatal]
  - Oxygen saturation decreased [Fatal]
  - Cardiac failure chronic [Unknown]
  - Pyrexia [Fatal]
  - Cough [Fatal]
  - Vomiting [Unknown]

NARRATIVE: CASE EVENT DATE: 20210119
